FAERS Safety Report 6741131-0 (Version None)
Quarter: 2010Q2

REPORT INFORMATION
  Report Type: 
  Country: None (occurrence: None)
  Receive Date: 20100525
  Receipt Date: 20100525
  Transmission Date: 20101027
  Serious: Yes (Hospitalization, Other)
  Sender: FDA-Public Use
  Company Number: None

PATIENT
  Age: 85 Year
  Sex: Male
  Weight: 96 kg

DRUGS (14)
  1. VANCOMYCIN [Suspect]
     Indication: PNEUMONIA STAPHYLOCOCCAL
     Dosage: 1500 MG Q24H IV BOLUS
     Route: 040
     Dates: start: 20100312, end: 20100313
  2. CLONIDINE [Concomitant]
  3. DOCUSATE SODIUM [Concomitant]
  4. ENOXAPARIN SODIUM [Concomitant]
  5. VYTORIN [Concomitant]
  6. FAMOTIDINE [Concomitant]
  7. FENOFIBRATE [Concomitant]
  8. LASIX [Concomitant]
  9. KEPPRA [Concomitant]
  10. METOPROLOL TARTRATE [Concomitant]
  11. MULTIVITAMIN TABLETS [Concomitant]
  12. LOVAZA [Concomitant]
  13. BONIVA [Concomitant]
  14. POTASSIUM CHLORIDE [Concomitant]

REACTIONS (5)
  - BLOOD CREATININE INCREASED [None]
  - MOUTH HAEMORRHAGE [None]
  - OROPHARYNGEAL BLISTERING [None]
  - PYREXIA [None]
  - THROMBOCYTOPENIA [None]
